FAERS Safety Report 7943744-7 (Version None)
Quarter: 2011Q4

REPORT INFORMATION
  Report Type: 
  Country: None (occurrence: None)
  Receive Date: 20111128
  Receipt Date: 20111122
  Transmission Date: 20120403
  Serious: Yes (Other)
  Sender: FDA-Public Use
  Company Number: US-PFIZER INC-2010104283

PATIENT
  Sex: Male
  Weight: 79.3 kg

DRUGS (2)
  1. VIAGRA [Suspect]
     Indication: ERECTILE DYSFUNCTION
     Dosage: 50 MG, AS NEEDED
     Route: 048
     Dates: start: 20000101
  2. VIAGRA [Suspect]
     Indication: SEXUAL DYSFUNCTION

REACTIONS (3)
  - SURGERY [None]
  - EXPIRED DRUG ADMINISTERED [None]
  - DRUG INEFFECTIVE [None]
